FAERS Safety Report 9375614 (Version 3)
Quarter: 2014Q1

REPORT INFORMATION
  Report Type: Spontaneous
  Country: US (occurrence: US)
  Receive Date: 20130628
  Receipt Date: 20140116
  Transmission Date: 20141002
  Serious: Yes (Hospitalization)
  Sender: FDA-Public Use
  Company Number: US-B.I. PHARMACEUTICALS,INC./RIDGEFIELD-2013-BI-18234BP

PATIENT
  Age: 68 Year
  Sex: Male
  Weight: 79.38 kg

DRUGS (9)
  1. PRADAXA [Suspect]
     Indication: ANTICOAGULANT THERAPY
     Dosage: 150 MG
     Dates: start: 20110720, end: 20110804
  2. VITAMIN D 3 [Concomitant]
  3. PBX WITH MULBERRY [Concomitant]
  4. METFORMIN [Concomitant]
  5. DILTIAZEM [Concomitant]
     Dosage: 240 MG
  6. LISINOPRIL/HCTZ [Concomitant]
  7. LEVOTHYROXINE [Concomitant]
     Dosage: 300 MCG
  8. HYDRALAZINE [Concomitant]
     Dosage: 300 MG
  9. CLONIDINE [Concomitant]

REACTIONS (2)
  - Extradural haematoma [Unknown]
  - Coagulopathy [Unknown]
